FAERS Safety Report 9493867 (Version 2)
Quarter: 2014Q2

REPORT INFORMATION
  Report Type: Report from Study
  Country: BE (occurrence: BE)
  Receive Date: 20130902
  Receipt Date: 20140623
  Transmission Date: 20141212
  Serious: Yes (Hospitalization)
  Sender: FDA-Public Use
  Company Number: BE-ROCHE-1267813

PATIENT
  Age: 72 Year
  Sex: Male
  Weight: 87 kg

DRUGS (15)
  1. BEVACIZUMAB [Suspect]
     Indication: COLORECTAL CANCER
     Route: 042
     Dates: start: 20130213
  2. LEVOFOLIC [Suspect]
     Indication: COLORECTAL CANCER
     Route: 042
     Dates: start: 20130213
  3. 5-FLUOROURACIL [Suspect]
     Indication: COLORECTAL CANCER
     Route: 042
     Dates: start: 20130213
  4. 5-FLUOROURACIL [Suspect]
     Route: 042
     Dates: start: 20130213
  5. NEBIVOLOL [Concomitant]
     Indication: CARDIAC FAILURE
     Route: 048
  6. VASEXTEN [Concomitant]
     Indication: CARDIOVASCULAR DISORDER
     Route: 048
  7. SIMVASTATINE [Concomitant]
     Indication: HYPERLIPIDAEMIA
     Route: 048
  8. MINIPRESS [Concomitant]
     Indication: HYPERTENSION
     Dosage: AS NEEDED
     Route: 048
  9. MINITRAN (SPAIN) [Concomitant]
     Indication: CARDIOVASCULAR DISORDER
     Route: 048
  10. MOXONIDINE [Concomitant]
     Indication: HYPERTENSION
     Route: 048
  11. DOMINAL (BELGIUM) [Concomitant]
     Indication: ANXIETY
     Route: 048
  12. PANTOMED (BELGIUM) [Concomitant]
     Indication: GASTRIC ULCER
     Route: 048
  13. CO-DIOVANE [Concomitant]
     Indication: HYPERTENSION
  14. CORUNO [Concomitant]
  15. CITALOPRAM [Concomitant]
     Route: 065

REACTIONS (5)
  - Hypothermia [Recovered/Resolved]
  - Pyrexia [Recovered/Resolved]
  - Anal haemorrhage [Not Recovered/Not Resolved]
  - Asthenia [Not Recovered/Not Resolved]
  - Rectal discharge [Not Recovered/Not Resolved]
